FAERS Safety Report 5230360-3 (Version None)
Quarter: 2007Q1

REPORT INFORMATION
  Report Type: 
  Country: None (occurrence: None)
  Receive Date: 20070201
  Receipt Date: 20070122
  Transmission Date: 20070707
  Serious: Yes (Life-Threatening, Hospitalization)
  Sender: FDA-Public Use
  Company Number: 229991

PATIENT
  Age: 63 Year
  Sex: Male

DRUGS (10)
  1. MABTHERA (RITUXIMAB) CONC FOR SOLUTION FOR INFUSION [Suspect]
     Indication: LYMPHOMA
     Dosage: 700 MG, 1/WEEK, INTRAVENOUS
     Route: 042
     Dates: start: 20060822
  2. CYCLOPHOSPHAMIDE [Suspect]
     Indication: LYMPHOMA
     Dosage: 900 MG, QD, INTRAVENOUS
     Route: 042
     Dates: start: 20060824
  3. VINCRISTINE [Suspect]
     Indication: LYMPHOMA
     Dosage: 2 MG, QD, INTRAVENOUS
     Route: 042
     Dates: start: 20060823
  4. PREDNISOLONE [Suspect]
     Indication: LYMPHOMA
     Dosage: 110 MG, SINGLE, ORAL
     Route: 048
     Dates: start: 20060823, end: 20060823
  5. DOXORUBICIN HCL [Suspect]
     Indication: LYMPHOMA
     Dosage: 110 MG, QD, INTRAVENOUS
     Route: 042
     Dates: start: 20060824, end: 20060824
  6. METHOTREXATE [Suspect]
     Indication: LYMPHOMA
     Dosage: 5.6 MG, INTRAVENOUS; SEE IMAGE
     Route: 042
     Dates: start: 20060823
  7. METHOTREXATE [Suspect]
     Indication: LYMPHOMA
     Dosage: 5.6 MG, INTRAVENOUS; SEE IMAGE
     Route: 042
     Dates: start: 20060824
  8. OFLOXACIN [Concomitant]
  9. NEUPOGEN [Concomitant]
  10. CEFIXIME CHEWABLE [Concomitant]

REACTIONS (1)
  - GASTRIC ULCER HAEMORRHAGE [None]
